FAERS Safety Report 7777169-4 (Version None)
Quarter: 2011Q3

REPORT INFORMATION
  Report Type: 
  Country: None (occurrence: None)
  Receive Date: 20110926
  Receipt Date: 20110915
  Transmission Date: 20111222
  Serious: Yes (Other)
  Sender: FDA-Public Use
  Company Number: US-AMGEN-USASP2011047617

PATIENT
  Age: 59 Year
  Sex: Female

DRUGS (1)
  1. ENBREL [Suspect]
     Indication: RHEUMATOID ARTHRITIS
     Dosage: 50 MG, QWK
     Dates: start: 20100701, end: 20110801

REACTIONS (4)
  - INGROWING NAIL [None]
  - INJECTION SITE PAIN [None]
  - COLONIC POLYP [None]
  - POST PROCEDURAL INFECTION [None]
